FAERS Safety Report 12876892 (Version 1)
Quarter: 2016Q4

REPORT INFORMATION
  Report Type: Spontaneous
  Country: US (occurrence: US)
  Receive Date: 20161022
  Receipt Date: 20161022
  Transmission Date: 20170207
  Serious: Yes (Hospitalization, Other)
  Sender: FDA-Public Use
  Company Number: None

PATIENT
  Age: 67 Year
  Sex: Male
  Weight: 120.6 kg

DRUGS (6)
  1. NAPR-OXEN [Concomitant]
  2. ASPIRIN. [Concomitant]
     Active Substance: ASPIRIN
  3. ALLOPURINOL. [Concomitant]
     Active Substance: ALLOPURINOL
  4. MODAFINIL. [Concomitant]
     Active Substance: MODAFINIL
  5. ZOLPIDEM [Suspect]
     Active Substance: ZOLPIDEM\ZOLPIDEM TARTRATE
     Indication: INSOMNIA
     Dates: start: 20061001, end: 20160913
  6. TAMSULOSSIN [Concomitant]

REACTIONS (3)
  - Somnambulism [None]
  - Sleep-related eating disorder [None]
  - Road traffic accident [None]

NARRATIVE: CASE EVENT DATE: 20160915
